FAERS Safety Report 20508486 (Version 5)
Quarter: 2022Q2

REPORT INFORMATION
  Report Type: Report from Study
  Country: SI (occurrence: SI)
  Receive Date: 20220223
  Receipt Date: 20220418
  Transmission Date: 20220720
  Serious: Yes (Death, Hospitalization, Other)
  Sender: FDA-Public Use
  Company Number: SI-BAYER-2022A020876

PATIENT
  Age: 69 Year
  Sex: Male

DRUGS (5)
  1. NEXAVAR [Suspect]
     Active Substance: SORAFENIB
     Indication: Hepatocellular carcinoma
     Dosage: UNK
     Dates: start: 20220202, end: 20220218
  2. NEXAVAR [Suspect]
     Active Substance: SORAFENIB
     Indication: Hepatocellular carcinoma
     Dosage: UNK
     Dates: start: 202202
  3. FUROSEMIDE [Concomitant]
     Active Substance: FUROSEMIDE
     Dosage: 2TAB PER DAY
  4. PORTALAC [LACTULOSE] [Concomitant]
     Dosage: UNK
  5. CLOTRIMAZOLE [Concomitant]
     Active Substance: CLOTRIMAZOLE
     Dosage: UNK

REACTIONS (12)
  - Lung disorder [Fatal]
  - Blood test abnormal [Recovering/Resolving]
  - Abdominal distension [Not Recovered/Not Resolved]
  - Oedema peripheral [Not Recovered/Not Resolved]
  - Renal pain [Recovered/Resolved]
  - Pyrexia [Recovered/Resolved]
  - Abdominal pain [Recovered/Resolved]
  - Dysphagia [Recovering/Resolving]
  - Therapeutic response unexpected [Recovered/Resolved]
  - Constipation [Recovered/Resolved]
  - Scrotal oedema [Not Recovered/Not Resolved]
  - Scrotal inflammation [Not Recovered/Not Resolved]

NARRATIVE: CASE EVENT DATE: 20220201
